FAERS Safety Report 24728941 (Version 1)
Quarter: 2024Q4

REPORT INFORMATION
  Report Type: Spontaneous
  Country: PL (occurrence: PL)
  Receive Date: 20241212
  Receipt Date: 20241212
  Transmission Date: 20250114
  Serious: Yes (Hospitalization)
  Sender: ACCORD
  Company Number: None

PATIENT
  Age: 59 Year
  Sex: Male

DRUGS (3)
  1. GEMCITABINE [Suspect]
     Active Substance: GEMCITABINE
     Indication: Peritoneal mesothelioma malignant recurrent
     Dates: start: 20200827
  2. ENOXAPARIN [Concomitant]
     Active Substance: ENOXAPARIN
     Indication: Peritoneal mesothelioma malignant recurrent
     Dosage: DOSE: IN THE MORNING.
  3. FUROSEMIDE [Concomitant]
     Active Substance: FUROSEMIDE
     Indication: Ascites
     Dosage: DOSE: IN THE MORNING.

REACTIONS (4)
  - Pyrexia [Recovering/Resolving]
  - Asthenia [Recovering/Resolving]
  - Chest pain [Recovering/Resolving]
  - Cough [Recovering/Resolving]

NARRATIVE: CASE EVENT DATE: 20200829
